FAERS Safety Report 15526166 (Version 1)
Quarter: 2018Q4

REPORT INFORMATION
  Report Type: Spontaneous
  Country: US (occurrence: US)
  Receive Date: 20181018
  Receipt Date: 20181018
  Transmission Date: 20190205
  Serious: Yes (Other)
  Sender: FDA-Public Use
  Company Number: US-MYLANLABS-2018M1077253

PATIENT
  Age: 74 Year
  Sex: Male

DRUGS (1)
  1. ATORVASTATIN [Suspect]
     Active Substance: ATORVASTATIN
     Indication: PRODUCT USED FOR UNKNOWN INDICATION
     Dosage: DAILY ATORVASTATIN FOR 10 YEARS.
     Route: 065

REACTIONS (2)
  - Fall [Unknown]
  - Immune-mediated necrotising myopathy [Not Recovered/Not Resolved]
